FAERS Safety Report 7597051-5 (Version None)
Quarter: 2011Q3

REPORT INFORMATION
  Report Type: 
  Country: None (occurrence: None)
  Receive Date: 20110708
  Receipt Date: 20110705
  Transmission Date: 20111222
  Serious: Yes (Hospitalization)
  Sender: FDA-Public Use
  Company Number: IL-GENZYME-CAMP-1001729

PATIENT
  Sex: Male
  Weight: 87 kg

DRUGS (2)
  1. ALEMTUZUMAB [Suspect]
     Indication: MULTIPLE SCLEROSIS
     Dosage: 12 MG, QDX5
     Dates: start: 20090419, end: 20090423
  2. ALEMTUZUMAB [Suspect]
     Dosage: 12 MG, QDX3
     Dates: start: 20100426, end: 20100428

REACTIONS (1)
  - THYROIDITIS [None]
